FAERS Safety Report 18544223 (Version 1)
Quarter: 2020Q4

REPORT INFORMATION
  Report Type: Other
  Country: US (occurrence: US)
  Receive Date: 20201125
  Receipt Date: 20201125
  Transmission Date: 20210114
  Serious: Yes (Hospitalization)
  Sender: FDA-Public Use
  Company Number: US-ACI HEALTHCARE LIMITED-2096290

PATIENT
  Age: 67 Year
  Sex: Female

DRUGS (6)
  1. MIDAZOLAM. [Concomitant]
     Active Substance: MIDAZOLAM
     Route: 065
  2. LACOSAMIDE. [Concomitant]
     Active Substance: LACOSAMIDE
     Route: 065
  3. LITHIUM. [Concomitant]
     Active Substance: LITHIUM
     Route: 065
  4. FOSPHENYTOIN SODIUM. [Concomitant]
     Active Substance: FOSPHENYTOIN SODIUM
     Route: 065
  5. HALOPERIDOL. [Concomitant]
     Active Substance: HALOPERIDOL
     Route: 065
  6. LEVETIRACETAM. [Suspect]
     Active Substance: LEVETIRACETAM
     Indication: STATUS EPILEPTICUS
     Route: 065

REACTIONS (1)
  - Drug ineffective [Unknown]
